FAERS Safety Report 12644486 (Version 2)
Quarter: 2016Q3

REPORT INFORMATION
  Report Type: Report from Study
  Country: US (occurrence: US)
  Receive Date: 20160811
  Receipt Date: 20160819
  Transmission Date: 20161109
  Serious: Yes (Other)
  Sender: FDA-Public Use
  Company Number: US-GILEAD-2016-0227602

PATIENT
  Age: 45 Year
  Sex: Female
  Weight: 136.5 kg

DRUGS (13)
  1. METOLAZONE. [Concomitant]
     Active Substance: METOLAZONE
  2. AMLODIPINE [Concomitant]
     Active Substance: AMLODIPINE BESYLATE
  3. FUROSEMIDE. [Concomitant]
     Active Substance: FUROSEMIDE
  4. KLOR-CON [Concomitant]
     Active Substance: POTASSIUM CHLORIDE
  5. OXYGEN. [Concomitant]
     Active Substance: OXYGEN
  6. FISH OIL [Concomitant]
     Active Substance: FISH OIL
  7. LISINOPRIL. [Concomitant]
     Active Substance: LISINOPRIL
  8. OXYCODONE                          /00045603/ [Concomitant]
     Active Substance: OXYCODONE
  9. FENTANYL. [Concomitant]
     Active Substance: FENTANYL
  10. AMBRISENTAN [Suspect]
     Active Substance: AMBRISENTAN
     Indication: PULMONARY ARTERIAL HYPERTENSION
     Dosage: 5 MG, QD
     Route: 048
     Dates: start: 20150617
  11. CYCLOBENZAPRINE [Concomitant]
     Active Substance: CYCLOBENZAPRINE
  12. VITAMIN E                          /00110501/ [Concomitant]
     Active Substance: TOCOPHEROL
  13. GABAPENTIN. [Concomitant]
     Active Substance: GABAPENTIN

REACTIONS (4)
  - Fall [Unknown]
  - Loss of consciousness [Unknown]
  - Pain [Unknown]
  - Head injury [Unknown]

NARRATIVE: CASE EVENT DATE: 20160719
